FAERS Safety Report 7693586-5 (Version None)
Quarter: 2011Q3

REPORT INFORMATION
  Report Type: 
  Country: None (occurrence: None)
  Receive Date: 20110816
  Receipt Date: 20110802
  Transmission Date: 20111222
  Serious: Yes (Hospitalization, Other)
  Sender: FDA-Public Use
  Company Number: AUR-APL-2011-02715

PATIENT
  Age: 57 Year
  Sex: Male

DRUGS (13)
  1. NAFTIDROFURYL OXALATE (NAFTIDROFURYL OXALATE) [Concomitant]
  2. GLYCERYL TRINTRATE (GLYCERYL TRINTRATE) [Concomitant]
  3. ISOSORBIDE MONONITRATE [Concomitant]
  4. RAMIPRIL [Concomitant]
  5. ASPIRIN [Concomitant]
  6. AMLODIPINE [Concomitant]
  7. CARVEDILOL [Concomitant]
  8. SIMVASTATIN [Suspect]
     Indication: HYPERCHOLESTEROLAEMIA
     Dosage: ORAL
     Route: 048
     Dates: start: 20060727, end: 20110522
  9. ACETAMINOPHEN [Concomitant]
  10. TRIMETHOPRIM [Suspect]
     Indication: URINARY TRACT INFECTION
     Dosage: 200 MG, 1 IN 1 D, ORAL
     Route: 048
     Dates: start: 20110520, end: 20110522
  11. RANOLAZINE [Suspect]
     Indication: ANGINA PECTORIS
     Dosage: 750 MG (375 MG, 2 IN 1 D), ORAL; 1000 MG (500 MG, 2 IN 1 D0, ORAL
     Route: 048
     Dates: start: 20110407, end: 20110505
  12. RANOLAZINE [Suspect]
     Indication: ANGINA PECTORIS
     Dosage: 750 MG (375 MG, 2 IN 1 D), ORAL; 1000 MG (500 MG, 2 IN 1 D0, ORAL
     Route: 048
     Dates: start: 20110506, end: 20110522
  13. ENOXAPARIN SODIUM [Concomitant]

REACTIONS (10)
  - MUSCULOSKELETAL PAIN [None]
  - RHABDOMYOLYSIS [None]
  - URINARY TRACT INFECTION [None]
  - CHROMATURIA [None]
  - MALAISE [None]
  - ANGINA PECTORIS [None]
  - VOMITING [None]
  - DRUG INTERACTION [None]
  - ARTHRALGIA [None]
  - BLOOD UREA INCREASED [None]
